FAERS Safety Report 7403703-X (Version None)
Quarter: 2011Q2

REPORT INFORMATION
  Report Type: 
  Country: None (occurrence: None)
  Receive Date: 20110408
  Receipt Date: 20110405
  Transmission Date: 20111010
  Serious: Yes (Death, Hospitalization, Other)
  Sender: FDA-Public Use
  Company Number: PHEH2005US02736

PATIENT
  Sex: Male

DRUGS (18)
  1. PROPRANOLOL [Concomitant]
  2. TAXOL [Concomitant]
     Dosage: UNK, UNK
     Dates: start: 20030101
  3. EMCYT [Concomitant]
  4. PRINIVIL [Concomitant]
  5. ACETYLSALICYLIC ACID SRT [Concomitant]
     Dosage: 81 MG, QD
  6. ZOMETA [Suspect]
     Indication: PROSTATE CANCER METASTATIC
     Dosage: 4 MG, Q 4 WEEKS
     Dates: start: 20030123, end: 20050216
  7. SELENIUM [Concomitant]
  8. NAPROSYN [Concomitant]
  9. COMPAZINE [Concomitant]
     Dosage: UNK, PRN
  10. ZOLADEX [Concomitant]
     Dosage: UNK, UNK
  11. CASODEX [Concomitant]
     Dosage: UNK, UNK
  12. COUMADIN [Concomitant]
  13. LASIX [Concomitant]
  14. LUPRON [Concomitant]
  15. PROCRIT [Concomitant]
     Indication: ANAEMIA
  16. ZOCOR [Concomitant]
  17. MULTI-VITAMINS [Concomitant]
  18. CALCIUM [Concomitant]

REACTIONS (30)
  - BONE DISORDER [None]
  - IMPAIRED HEALING [None]
  - NAUSEA [None]
  - TRICUSPID VALVE DISEASE [None]
  - DEATH [None]
  - ABDOMINAL PAIN UPPER [None]
  - SPINAL COMPRESSION FRACTURE [None]
  - LEFT VENTRICULAR DYSFUNCTION [None]
  - OSTEONECROSIS OF JAW [None]
  - NEUROPATHY PERIPHERAL [None]
  - MITRAL VALVE DISEASE [None]
  - ASCITES [None]
  - VOMITING [None]
  - PLEURAL EFFUSION [None]
  - PAIN IN EXTREMITY [None]
  - ASTHMA [None]
  - PAIN IN JAW [None]
  - RIB FRACTURE [None]
  - HYPOXIA [None]
  - BURSITIS INFECTIVE [None]
  - ONYCHOMYCOSIS [None]
  - NEUTROPENIA [None]
  - DYSPNOEA [None]
  - OSTEOARTHRITIS [None]
  - DEEP VEIN THROMBOSIS [None]
  - IRON DEFICIENCY ANAEMIA [None]
  - LUNG DISORDER [None]
  - ATELECTASIS [None]
  - HEPATIC NEOPLASM MALIGNANT [None]
  - PNEUMONIA [None]
